FAERS Safety Report 17557890 (Version 1)
Quarter: 2020Q1

REPORT INFORMATION
  Report Type: Spontaneous
  Country: US (occurrence: US)
  Receive Date: 20200311
  Receipt Date: 20200311
  Transmission Date: 20200409
  Serious: No
  Sender: FDA-Public Use
  Company Number: None

PATIENT
  Age: 96 Year
  Sex: Male

DRUGS (1)
  1. ABIRATERONE 250MG APOTEX [Suspect]
     Active Substance: ABIRATERONE
     Indication: PROSTATE CANCER
     Route: 048
     Dates: start: 20191030

REACTIONS (7)
  - Tremor [None]
  - Insomnia [None]
  - Chills [None]
  - Heart rate decreased [None]
  - Hyperhidrosis [None]
  - Hypertension [None]
  - Fatigue [None]

NARRATIVE: CASE EVENT DATE: 202001
